FAERS Safety Report 8284532 (Version 2)
Quarter: 2012Q4

REPORT INFORMATION
  Report Type: 
  Country: US (occurrence: US)
  Receive Date: 20111212
  Receipt Date: 20121213
  Transmission Date: 20130627
  Serious: No
  Sender: FDA-Public Use
  Company Number: US-BRISTOL-MYERS SQUIBB COMPANY-15983554

PATIENT
  Age: 61 Year
  Sex: Female

DRUGS (2)
  1. IXEMPRA [Suspect]
     Indication: BREAST CANCER METASTATIC
     Dosage: received the drug for 4 times
     Route: 042
     Dates: start: 20110516
  2. DILAUDID [Concomitant]
     Dosage: 1 or 2 every hours

REACTIONS (1)
  - Neuropathy peripheral [Not Recovered/Not Resolved]
